FAERS Safety Report 13028800 (Version 1)
Quarter: 2016Q4

REPORT INFORMATION
  Report Type: Spontaneous
  Country: TR (occurrence: TR)
  Receive Date: 20161214
  Receipt Date: 20161214
  Transmission Date: 20170207
  Serious: Yes (Hospitalization)
  Sender: FDA-Public Use
  Company Number: TR-ASTRAZENECA-2016SF31034

PATIENT
  Age: 24 Year
  Sex: Male

DRUGS (1)
  1. NEXIUM [Suspect]
     Active Substance: ESOMEPRAZOLE MAGNESIUM
     Indication: ABDOMINAL PAIN UPPER
     Route: 048
     Dates: start: 2014

REACTIONS (3)
  - Hypokalaemia [Recovered/Resolved]
  - Cardiac arrest [Unknown]
  - Sensory loss [Unknown]

NARRATIVE: CASE EVENT DATE: 201611
